FAERS Safety Report 7256676-7 (Version None)
Quarter: 2011Q1

REPORT INFORMATION
  Report Type: 
  Country: None (occurrence: None)
  Receive Date: 20110129
  Receipt Date: 20100809
  Transmission Date: 20110831
  Serious: No
  Sender: FDA-Public Use
  Company Number: US-ABBOTT-10P-163-0663106-00

PATIENT
  Age: 47 Year
  Sex: Female

DRUGS (9)
  1. HUMIRA [Suspect]
     Indication: RHEUMATOID ARTHRITIS
     Dates: start: 20100501
  2. PROTONIX [Concomitant]
     Indication: DYSPEPSIA
     Dosage: 40 MG DAILY
  3. LEVOTHYROXINE SODIUM [Concomitant]
     Indication: THYROID DISORDER
     Dosage: 0.88 MG DAILY
  4. DICLOFENAC [Concomitant]
     Indication: RHEUMATOID ARTHRITIS
  5. PRAVASTATIN [Concomitant]
     Indication: BLOOD CHOLESTEROL
     Dosage: AT PM
  6. PLAQUENIL [Concomitant]
     Indication: RHEUMATOID ARTHRITIS
  7. OGEN [Concomitant]
     Indication: HORMONE REPLACEMENT THERAPY
     Dosage: DAILY
  8. MULTI-VITAMINS [Concomitant]
     Indication: PRODUCT USED FOR UNKNOWN INDICATION
  9. LISINOPRIL [Concomitant]
     Indication: BLOOD PRESSURE
     Dosage: 10 MG DAILY

REACTIONS (4)
  - INFECTION [None]
  - ERUCTATION [None]
  - PAIN [None]
  - MELAENA [None]
